FAERS Safety Report 9235425 (Version 3)
Quarter: 2013Q2

REPORT INFORMATION
  Report Type: Spontaneous
  Country: FR (occurrence: FR)
  Receive Date: 20130417
  Receipt Date: 20130521
  Transmission Date: 20140414
  Serious: Yes (Death, Other)
  Sender: FDA-Public Use
  Company Number: FR-RANBAXY-2013RR-67445

PATIENT
  Age: 20 Year
  Sex: Male

DRUGS (10)
  1. CLARITHROMYCIN [Suspect]
     Indication: MYCOBACTERIUM AVIUM COMPLEX INFECTION
     Dosage: UNK
     Route: 065
     Dates: start: 200606, end: 2007
  2. AZITHROMYCIN [Suspect]
     Indication: MYCOBACTERIUM AVIUM COMPLEX INFECTION
     Dosage: UNK
     Route: 065
     Dates: start: 200501
  3. MOXIFLOXACIN [Suspect]
     Indication: MYCOBACTERIUM AVIUM COMPLEX INFECTION
     Dosage: UNK
     Route: 065
     Dates: start: 2005
  4. MOXIFLOXACIN [Suspect]
     Indication: MYCOBACTERIUM AVIUM COMPLEX INFECTION
     Dosage: UNK
     Route: 065
     Dates: start: 2007
  5. ETHAMBUTOL [Suspect]
     Indication: MYCOBACTERIUM AVIUM COMPLEX INFECTION
     Dosage: UNK
     Route: 065
     Dates: start: 200501
  6. ETHAMBUTOL [Suspect]
     Indication: MYCOBACTERIUM AVIUM COMPLEX INFECTION
     Dosage: UNK
     Route: 065
     Dates: start: 200606
  7. AMIKACIN [Suspect]
     Indication: MYCOBACTERIUM AVIUM COMPLEX INFECTION
     Dosage: UNK
     Route: 042
     Dates: start: 200501
  8. AMIKACIN [Suspect]
     Indication: MYCOBACTERIUM AVIUM COMPLEX INFECTION
     Dosage: UNK
     Route: 042
     Dates: start: 200705
  9. RIFABUTIN [Suspect]
     Indication: MYCOBACTERIUM AVIUM COMPLEX INFECTION
     Dosage: UNK
     Route: 065
     Dates: start: 2005
  10. RIFABUTIN [Suspect]
     Dosage: UNK
     Route: 065
     Dates: start: 200606

REACTIONS (2)
  - Multiple-drug resistance [Fatal]
  - Ototoxicity [Unknown]
